FAERS Safety Report 13771932 (Version 1)
Quarter: 2017Q3

REPORT INFORMATION
  Report Type: Spontaneous
  Country: US (occurrence: US)
  Receive Date: 20170720
  Receipt Date: 20170720
  Transmission Date: 20171127
  Serious: No
  Sender: FDA-Public Use
  Company Number: US-BION-005094

PATIENT
  Sex: Female

DRUGS (4)
  1. A LOT OF OTHER UNSPECIFIED CALCIUM PRODUCTS [Concomitant]
  2. CALCITRIOL. [Suspect]
     Active Substance: CALCITRIOL
  3. CALCITRIOL. [Suspect]
     Active Substance: CALCITRIOL
  4. CALCIUM ACETATE. [Suspect]
     Active Substance: CALCIUM ACETATE

REACTIONS (2)
  - Diarrhoea [Unknown]
  - Abdominal pain upper [Unknown]
